FAERS Safety Report 9648479 (Version 1)
Quarter: 2013Q4

REPORT INFORMATION
  Report Type: Spontaneous
  Country: FR (occurrence: FR)
  Receive Date: 20131028
  Receipt Date: 20131028
  Transmission Date: 20140711
  Serious: Yes (Hospitalization)
  Sender: FDA-Public Use
  Company Number: FR-JNJFOC-20131015634

PATIENT
  Age: 73 Year
  Sex: Female

DRUGS (6)
  1. XARELTO [Suspect]
     Indication: PRODUCT USED FOR UNKNOWN INDICATION
     Route: 048
     Dates: start: 201301, end: 20130409
  2. VITAMIN B12 [Concomitant]
     Dosage: AMPULE AT MIDDY
     Route: 048
  3. LEVOTHYROX [Concomitant]
     Route: 065
  4. BIPERIDYS [Concomitant]
     Route: 065
  5. LYSANXIA [Concomitant]
     Route: 065
  6. DOLIPRANE [Concomitant]
     Route: 065

REACTIONS (1)
  - Ischaemic stroke [Unknown]
